FAERS Safety Report 7648617-5 (Version None)
Quarter: 2011Q3

REPORT INFORMATION
  Report Type: 
  Country: None (occurrence: None)
  Receive Date: 20110801
  Receipt Date: 20110718
  Transmission Date: 20111222
  Serious: Yes (Hospitalization, Disabling, Other)
  Sender: FDA-Public Use
  Company Number: PHHY2011US59771

PATIENT
  Sex: Male
  Weight: 81 kg

DRUGS (14)
  1. HYDROXYUREA [Concomitant]
     Dosage: 500 MG, IN THE EVENING
  2. ALBUTEROL SULFATE AUTOHALER [Concomitant]
     Indication: WHEEZING
     Dosage: 1 TO 2 PUFFS EVERY 4 HOURS PRN
  3. ZOLOFT [Concomitant]
     Dosage: 25 MG, QD
     Route: 048
  4. CLOTRIMAZOLE [Concomitant]
     Dosage: PRN
  5. TRANSFUSIONS [Concomitant]
     Dosage: EVERY WEEK
  6. EXJADE [Suspect]
     Dosage: 1500 MG, QD
     Route: 048
     Dates: start: 20100806
  7. METHADONE HYDROCHLORIDE [Concomitant]
     Indication: SEDATION
     Dosage: 20 MG, BID
  8. SPIRONOLACTONE [Concomitant]
     Dosage: 25 MG, DAILY
     Route: 048
  9. LASIX [Concomitant]
     Dosage: 40 MG, DAILY
  10. HYDROXYUREA [Concomitant]
     Dosage: 100 MG, IN THE MORNING
  11. METHADONE HYDROCHLORIDE [Concomitant]
     Dosage: 50 MG, DAILY
  12. SPIRONOLACTONE [Concomitant]
     Dosage: 25 MG, TID
     Route: 048
  13. LYRICA [Concomitant]
     Dosage: 150 MG, QD
  14. FUROSEMIDE [Concomitant]
     Dosage: 40 MG, DAILY
     Route: 048

REACTIONS (14)
  - RESPIRATORY FAILURE [None]
  - BLOOD PRESSURE DIASTOLIC DECREASED [None]
  - DEPRESSION [None]
  - GASTROINTESTINAL DISORDER [None]
  - BONE MARROW FAILURE [None]
  - ANXIETY [None]
  - ANAEMIA [None]
  - MOBILITY DECREASED [None]
  - SPLENOMEGALY [None]
  - PNEUMONIA STAPHYLOCOCCAL [None]
  - ENCEPHALOPATHY [None]
  - CHRONIC OBSTRUCTIVE PULMONARY DISEASE [None]
  - ABDOMINAL DISTENSION [None]
  - MYELOFIBROSIS [None]
